FAERS Safety Report 20876126 (Version 1)
Quarter: 2022Q2

REPORT INFORMATION
  Report Type: Spontaneous
  Country: US (occurrence: US)
  Receive Date: 20220526
  Receipt Date: 20220526
  Transmission Date: 20220721
  Serious: No
  Sender: FDA-Public Use
  Company Number: US-NOVEN PHARMACEUTICALS, INC.-2021-NOV-US003819

PATIENT
  Sex: Male

DRUGS (3)
  1. DAYTRANA [Suspect]
     Active Substance: METHYLPHENIDATE
     Indication: Attention deficit hyperactivity disorder
     Dosage: 15 MG/9 HOUR, UNK
     Route: 062
     Dates: start: 2021, end: 2021
  2. DAYTRANA [Suspect]
     Active Substance: METHYLPHENIDATE
     Indication: Autism spectrum disorder
     Dosage: 15 MG/9 HOUR, UNK
     Route: 062
     Dates: start: 2017
  3. DAYTRANA [Suspect]
     Active Substance: METHYLPHENIDATE
     Dosage: 15 MG/9 HOUR, UNK
     Route: 062
     Dates: start: 2014

REACTIONS (5)
  - Application site urticaria [Unknown]
  - Adhesive tape use [Recovered/Resolved]
  - Product administered at inappropriate site [Recovered/Resolved]
  - Product adhesion issue [Recovered/Resolved]
  - Off label use [Recovered/Resolved]
